FAERS Safety Report 20735488 (Version 2)
Quarter: 2022Q2

REPORT INFORMATION
  Report Type: Spontaneous
  Country: US (occurrence: US)
  Receive Date: 20220421
  Receipt Date: 20220428
  Transmission Date: 20220721
  Serious: Yes (Other)
  Sender: FDA-Public Use
  Company Number: US-OTSUKA-2022_024074

PATIENT

DRUGS (1)
  1. ABILIFY [Suspect]
     Active Substance: ARIPIPRAZOLE
     Indication: Schizoaffective disorder
     Dosage: UNK
     Route: 065

REACTIONS (6)
  - Coma [Unknown]
  - Suicide attempt [Unknown]
  - Abnormal behaviour [Unknown]
  - Gambling disorder [Unknown]
  - Divorced [Unknown]
  - Product use in unapproved indication [Unknown]
